FAERS Safety Report 5572677-9 (Version None)
Quarter: 2007Q4

REPORT INFORMATION
  Report Type: 
  Country: None (occurrence: None)
  Receive Date: 20071222
  Receipt Date: 20071213
  Transmission Date: 20080405
  Serious: Yes (Other)
  Sender: FDA-Public Use
  Company Number: BR-PFIZER INC-2007106354

PATIENT
  Sex: Female
  Weight: 53 kg

DRUGS (3)
  1. LIPITOR [Suspect]
     Indication: BLOOD CHOLESTEROL ABNORMAL
     Route: 048
  2. KETOROLAC TROMETHAMINE [Concomitant]
  3. ENZYMES [Concomitant]

REACTIONS (3)
  - BRONCHITIS [None]
  - HALLUCINATION [None]
  - MALAISE [None]
